FAERS Safety Report 8740576 (Version 6)
Quarter: 2013Q3

REPORT INFORMATION
  Report Type: Spontaneous
  Country: US (occurrence: US)
  Receive Date: 20120823
  Receipt Date: 20130911
  Transmission Date: 20140515
  Serious: Yes (Hospitalization, Other)
  Sender: FDA-Public Use
  Company Number: US-009507513-1208USA008480

PATIENT
  Sex: Female
  Weight: 77.98 kg

DRUGS (2)
  1. NUVARING [Suspect]
     Indication: HORMONE LEVEL ABNORMAL
     Dosage: UNK
     Route: 067
     Dates: start: 20100525, end: 20100713
  2. NUVARING [Suspect]
     Indication: CONTRACEPTION
     Dosage: UNK
     Dates: start: 20111214, end: 20120306

REACTIONS (16)
  - Pulmonary embolism [Unknown]
  - Headache [Unknown]
  - Attention deficit/hyperactivity disorder [Unknown]
  - Off label use [Recovered/Resolved]
  - Cerebral calcification [Unknown]
  - Meningioma [Unknown]
  - Blood pressure decreased [Unknown]
  - Migraine [Unknown]
  - Hormone level abnormal [Unknown]
  - Venous thrombosis limb [Recovered/Resolved]
  - Chest pain [Unknown]
  - Nausea [Unknown]
  - Frequent bowel movements [Unknown]
  - Abdominal pain [Unknown]
  - Back pain [Unknown]
  - Local swelling [Unknown]
